FAERS Safety Report 25611164 (Version 1)
Quarter: 2025Q3

REPORT INFORMATION
  Report Type: Spontaneous
  Country: US (occurrence: None)
  Receive Date: 20250725
  Receipt Date: 20250725
  Transmission Date: 20251020
  Serious: Yes (Hospitalization)
  Sender: FDA-CTU
  Company Number: None

PATIENT
  Age: 46 Year
  Sex: Female

DRUGS (1)
  1. GLATIRAMER ACETATE [Suspect]
     Active Substance: GLATIRAMER ACETATE
     Dosage: 40MG THREE TIMES WEEKLY

REACTIONS (6)
  - Fatigue [None]
  - Asthenia [None]
  - Abdominal discomfort [None]
  - Injection site mass [None]
  - Fall [None]
  - Haematemesis [None]
